FAERS Safety Report 23280285 (Version 6)
Quarter: 2024Q2

REPORT INFORMATION
  Report Type: Spontaneous
  Country: ES (occurrence: ES)
  Receive Date: 20231210
  Receipt Date: 20240516
  Transmission Date: 20240715
  Serious: Yes (Death, Other)
  Sender: FDA-Public Use
  Company Number: ES-BAXTER-2023BAX021834

PATIENT
  Age: 71 Year
  Sex: Female

DRUGS (27)
  1. BENDAMUSTINE [Suspect]
     Active Substance: BENDAMUSTINE
     Indication: Diffuse large B-cell lymphoma stage IV
     Dosage: UNK, CYCLIC (3RD LINE, 1 CYCLE, BRIDGE THERAPY)
     Route: 042
  2. BENDAMUSTINE [Suspect]
     Active Substance: BENDAMUSTINE
     Indication: Diffuse large B-cell lymphoma
  3. CYTARABINE [Suspect]
     Active Substance: CYTARABINE
     Indication: Diffuse large B-cell lymphoma stage IV
     Dosage: UNK, CYCLIC  (5TH LINE AS A PART OF R-MTX-ARA-C REGIMEN)
     Route: 065
  4. CYTARABINE [Suspect]
     Active Substance: CYTARABINE
     Indication: Diffuse large B-cell lymphoma
  5. DEXAMETHASONE [Suspect]
     Active Substance: DEXAMETHASONE
     Indication: Diffuse large B-cell lymphoma stage IV
     Dosage: UNK, UNKNOWN FREQ
     Route: 065
  6. DEXAMETHASONE [Suspect]
     Active Substance: DEXAMETHASONE
     Indication: Diffuse large B-cell lymphoma
  7. DEXAMETHASONE ACETATE [Suspect]
     Active Substance: DEXAMETHASONE ACETATE
     Indication: Diffuse large B-cell lymphoma stage IV
     Dosage: UNK
     Route: 065
  8. DOXORUBICIN [Suspect]
     Active Substance: DOXORUBICIN
     Indication: Diffuse large B-cell lymphoma
     Dosage: UNK UNK, CYCLIC (1ST LINE, 6 CYCLES AS A PART OF RCHOP REGIMEN)
     Route: 065
  9. DOXORUBICIN [Suspect]
     Active Substance: DOXORUBICIN
     Indication: Diffuse large B-cell lymphoma stage IV
     Dosage: UNK, CYCLIC (1ST LINE, 6 CYCLES AS A PART OF RCHOP REGIMEN)
     Route: 065
  10. EPIRUBICIN [Suspect]
     Active Substance: EPIRUBICIN
     Indication: Diffuse large B-cell lymphoma stage IV
     Dosage: UNK, CYCLIC, 2ND LINE, 8 CYCLES AS A PART OF EC REGIMEN ROUTE OF ADMIN (FREE TEXT): UNKNOWN ROUTE
     Route: 065
  11. EPIRUBICIN [Suspect]
     Active Substance: EPIRUBICIN
     Indication: Diffuse large B-cell lymphoma
  12. GENOXAL [Suspect]
     Active Substance: CYCLOPHOSPHAMIDE
     Indication: Diffuse large B-cell lymphoma
     Dosage: UNK, CYCLIC  (2ND LINE, 8 CYCLES AS A PART OF EC REGIMEN)
     Route: 065
  13. GENOXAL [Suspect]
     Active Substance: CYCLOPHOSPHAMIDE
     Indication: Diffuse large B-cell lymphoma stage IV
     Dosage: UNK, CYCLIC 1ST LINE, 6 CYCLES AS A PART OF RCHOP REGIMEN)
     Route: 065
  14. IMBRUVICA [Suspect]
     Active Substance: IBRUTINIB
     Indication: Diffuse large B-cell lymphoma
     Dosage: UNK, CYCLIC, 2ND LINE, 8 CYCLES ROUTE OF ADMIN (FREE TEXT): UNKNOWN ROUTE
     Route: 065
  15. IMBRUVICA [Suspect]
     Active Substance: IBRUTINIB
     Indication: Diffuse large B-cell lymphoma stage IV
     Dosage: UNK, CYCLIC, 6TH LINE, 4 CYCLES
     Route: 065
  16. METHOTREXATE [Suspect]
     Active Substance: METHOTREXATE
     Indication: Diffuse large B-cell lymphoma stage IV
     Dosage: UNK, CYCLIC (5TH LINE AS A PART OF R-MTX-ARA-C REGIMEN)
     Route: 065
  17. METHOTREXATE [Suspect]
     Active Substance: METHOTREXATE
     Indication: Diffuse large B-cell lymphoma
  18. MOSUNETUZUMAB [Suspect]
     Active Substance: MOSUNETUZUMAB
     Indication: Diffuse large B-cell lymphoma stage IV
     Dosage: UNK, CYCLIC, 2ND LINE, 8 CYCLES
     Route: 065
  19. MOSUNETUZUMAB [Suspect]
     Active Substance: MOSUNETUZUMAB
     Indication: Diffuse large B-cell lymphoma
  20. PREDNISONE [Suspect]
     Active Substance: PREDNISONE
     Indication: Diffuse large B-cell lymphoma stage IV
     Dosage: UNK, UNKNOWN FREQ.(1ST LINE, 6 CYCLES AS A PART OF RCHOP REGIMEN) ROUTE OF ADMIN (FREE TEXT): UNKNOW
     Route: 065
  21. PREDNISONE [Suspect]
     Active Substance: PREDNISONE
     Indication: Diffuse large B-cell lymphoma
  22. TEMODAL [Suspect]
     Active Substance: TEMOZOLOMIDE
     Indication: Diffuse large B-cell lymphoma stage IV
     Dosage: UNK, CYCLIC, 6TH LINE, 4 CYCLES
     Route: 065
  23. TRUXIMA [Suspect]
     Active Substance: RITUXIMAB-ABBS
     Dosage: UNK, CYCLIC  (3RD LINE, 1 CYCLE, BRIDGE THERAPY)
     Route: 065
  24. TRUXIMA [Suspect]
     Active Substance: RITUXIMAB-ABBS
     Indication: Diffuse large B-cell lymphoma stage IV
     Dosage: UNK, CYCLIC ((5TH LINE AS A PART OF R-MTX-ARA-C REGIMEN)
     Route: 065
  25. TRUXIMA [Suspect]
     Active Substance: RITUXIMAB-ABBS
     Indication: Diffuse large B-cell lymphoma
     Dosage: UNK, CYCLIC (1ST LINE, 6 CYCLES AS A PART OF RCHOP REGIMEN)
     Route: 065
  26. VINCRISTINE SULFATE [Suspect]
     Active Substance: VINCRISTINE SULFATE
     Indication: Diffuse large B-cell lymphoma stage IV
     Dosage: UNK, CYCLIC  (1ST LINE, 6 CYCLES AS A PART OF RCHOP REGIMEN)
     Route: 065
  27. VINCRISTINE SULFATE [Suspect]
     Active Substance: VINCRISTINE SULFATE
     Indication: Diffuse large B-cell lymphoma

REACTIONS (13)
  - Death [Fatal]
  - Vasogenic cerebral oedema [Not Recovered/Not Resolved]
  - Diffuse large B-cell lymphoma [Recovered/Resolved]
  - Neurological symptom [Unknown]
  - Diffuse large B-cell lymphoma recurrent [Unknown]
  - Disease progression [Recovered/Resolved]
  - Disease progression [Recovered/Resolved]
  - Vasogenic cerebral oedema [Recovered/Resolved]
  - Malignant neoplasm progression [Recovered/Resolved]
  - Malignant neoplasm progression [Recovered/Resolved]
  - Diffuse large B-cell lymphoma [Recovered/Resolved]
  - Disorientation [Unknown]
  - Therapy partial responder [Unknown]
